FAERS Safety Report 7497870-X (Version None)
Quarter: 2011Q2

REPORT INFORMATION
  Report Type: 
  Country: None (occurrence: None)
  Receive Date: 20110524
  Receipt Date: 20110511
  Transmission Date: 20111010
  Serious: Yes (Other)
  Sender: FDA-Public Use
  Company Number: US-BAYER-2011-040765

PATIENT
  Age: 39 Year
  Sex: Female

DRUGS (3)
  1. MIRENA [Suspect]
     Indication: CONTRACEPTION
     Dosage: 20 MCG/24HR, CONT
     Route: 015
     Dates: start: 20110407, end: 20110425
  2. NEURONTIN [Concomitant]
     Indication: NEURALGIA
  3. MIRENA [Suspect]
     Indication: DYSMENORRHOEA

REACTIONS (15)
  - ABDOMINAL PAIN [None]
  - DEPRESSED MOOD [None]
  - GENITAL HAEMORRHAGE [None]
  - PRURITUS [None]
  - FATIGUE [None]
  - ASTHENIA [None]
  - PROCEDURAL PAIN [None]
  - MENTAL DISORDER [None]
  - DIZZINESS [None]
  - MENORRHAGIA [None]
  - VAGINAL HAEMORRHAGE [None]
  - URTICARIA [None]
  - DEPRESSION POSTOPERATIVE [None]
  - HEADACHE [None]
  - PROCEDURAL DIZZINESS [None]
